FAERS Safety Report 4506455-6 (Version None)
Quarter: 2004Q4

REPORT INFORMATION
  Report Type: 
  Country: None (occurrence: None)
  Receive Date: 20041122
  Receipt Date: 20041110
  Transmission Date: 20050328
  Serious: Yes (Other)
  Sender: FDA-Public Use
  Company Number: US-JNJFOC-20040500994

PATIENT
  Sex: Female
  Weight: 98.88 kg

DRUGS (13)
  1. REMICADE [Suspect]
     Route: 042
  2. REMICADE [Suspect]
     Route: 042
  3. REMICADE [Suspect]
     Route: 042
  4. REMICADE [Suspect]
     Route: 042
  5. REMICADE [Suspect]
     Route: 042
  6. REMICADE [Suspect]
     Route: 042
  7. REMICADE [Suspect]
     Route: 042
  8. REMICADE [Suspect]
     Dosage: INDUCTION INFUSIONS 3MG.KG AT 0, 2, AND 6 WEEKS AND THEN EVERY EIGHT WEEKS THEREAFTER
     Route: 042
  9. CELLCEPT [Concomitant]
     Indication: RETINOPATHY
  10. ZANTAC [Concomitant]
  11. ZYRTEC [Concomitant]
  12. MONOPRIL [Concomitant]
  13. ASPIRIN [Concomitant]

REACTIONS (2)
  - ARTHRITIS [None]
  - ENDOMETRIAL CANCER STAGE I [None]
